APPROVED DRUG PRODUCT: DIDRONEL
Active Ingredient: ETIDRONATE DISODIUM
Strength: 200MG **Federal Register determination that product was not discontinued or withdrawn for safety or effectiveness reasons**
Dosage Form/Route: TABLET;ORAL
Application: N017831 | Product #001
Applicant: ALLERGAN PHARMACEUTICALS INTERNATIONAL LTD
Approved: Approved Prior to Jan 1, 1982 | RLD: Yes | RS: No | Type: DISCN